FAERS Safety Report 4610096-X (Version None)
Quarter: 2005Q1

REPORT INFORMATION
  Report Type: 
  Country: None (occurrence: None)
  Receive Date: 20050316
  Receipt Date: 20040806
  Transmission Date: 20050727
  Serious: Yes (Hospitalization)
  Sender: FDA-Public Use
  Company Number: FR-SANOFI-SYNTHELABO-F01200402373

PATIENT
  Sex: Male

DRUGS (4)
  1. OXALIPLATIN [Suspect]
     Indication: COLORECTAL CANCER METASTATIC
     Route: 042
     Dates: start: 20040706, end: 20040706
  2. CAPECITABINE [Suspect]
     Route: 048
     Dates: start: 20040706
  3. METFORMIN HCL [Concomitant]
     Dosage: UNK
     Route: 065
     Dates: start: 19880615
  4. TRIATEC [Concomitant]
     Dosage: UNK
     Route: 065
     Dates: start: 19940615

REACTIONS (2)
  - GENERAL PHYSICAL HEALTH DETERIORATION [None]
  - WEIGHT DECREASED [None]
